FAERS Safety Report 4787081-0 (Version None)
Quarter: 2005Q3

REPORT INFORMATION
  Report Type: 
  Country: None (occurrence: None)
  Receive Date: 20050930
  Receipt Date: 20050923
  Transmission Date: 20060218
  Serious: Yes (Life-Threatening)
  Sender: FDA-Public Use
  Company Number: 2005AL003735

PATIENT
  Age: 57 Year
  Sex: Female

DRUGS (7)
  1. KADIAN [Suspect]
     Dosage: 20 MG; BID; PO
     Route: 048
     Dates: start: 20050902, end: 20050902
  2. GABAPENTIN [Concomitant]
  3. PANTOPRAZOLE [Concomitant]
  4. FEXOFENADINE HCL [Concomitant]
  5. HYDROCHLORIDE [Concomitant]
  6. ATORVASTATIN CALCIUM [Concomitant]
  7. SERTRALINE HYDROCHLORIDE [Concomitant]

REACTIONS (1)
  - HYPERSENSITIVITY [None]
